FAERS Safety Report 4993346-X (Version None)
Quarter: 2006Q2

REPORT INFORMATION
  Report Type: 
  Country: None (occurrence: None)
  Receive Date: 20060505
  Receipt Date: 20060428
  Transmission Date: 20061013
  Serious: Yes (Life-Threatening, Hospitalization, Other)
  Sender: FDA-Public Use
  Company Number: PHEH2006US05622

PATIENT
  Age: 14 Year
  Sex: Male
  Weight: 68 kg

DRUGS (4)
  1. EXJADE [Suspect]
     Indication: BLOOD IRON INCREASED
     Dosage: 1500 MG, QD
     Dates: start: 20060201
  2. NAPROSYN [Concomitant]
     Indication: PAIN
     Dosage: UNK, PRN
  3. TYLENOL W/ CODEINE NO. 3 [Concomitant]
     Indication: PAIN
     Dosage: UNK, PRN
  4. ADDERALL 10 [Concomitant]

REACTIONS (7)
  - ATELECTASIS [None]
  - CHEST PAIN [None]
  - DYSPNOEA [None]
  - LUNG DISORDER [None]
  - PNEUMONIA [None]
  - PULMONARY EMBOLISM [None]
  - PYREXIA [None]
